FAERS Safety Report 11198864 (Version 2)
Quarter: 2015Q3

REPORT INFORMATION
  Report Type: Spontaneous
  Country: IT (occurrence: None)
  Receive Date: 20150616
  Receipt Date: 20150706
  Transmission Date: 20151125
  Serious: Yes (Hospitalization)
  Sender: FDA-Public Use
  Company Number: CO-ZN-IT-2015-017

PATIENT
  Age: 75 Year
  Sex: Male

DRUGS (6)
  1. SELOFEN (TABLET) (METOPROLOL TARTRATE) [Concomitant]
  2. SINVACOR (TABLET) (SIMVASTATIN) [Concomitant]
     Indication: ANTIINFLAMMATORY THERAPY
     Dosage: 2 VIALS, UNKNOWN DAILY DOSE, INTRAMUSCULAR
     Route: 030
     Dates: start: 20150517, end: 20150517
  3. RANEXA (MODIFIED-RELEASE TABLET) (RANOLAZINE) [Concomitant]
  4. CLOPIDOGREL (TABLET) [Concomitant]
  5. RANIDIL (SOLUTION FOR INJECTION) (RANIT IDINE HYDROCHLORIDE) [Suspect]
     Active Substance: RANITIDINE\RANITIDINE HYDROCHLORIDE
     Indication: BACK PAIN
     Route: 042
     Dates: start: 20150517, end: 20150517
  6. IBIFEN (UNKNOWN) (KETOPROFEN) [Suspect]
     Active Substance: KETOPROFEN
     Indication: ANTIINFLAMMATORY THERAPY
     Dosage: 2 VIALS
     Route: 030
     Dates: start: 20150517, end: 20150517

REACTIONS (3)
  - Presyncope [None]
  - Dyspnoea [None]
  - Drug hypersensitivity [None]

NARRATIVE: CASE EVENT DATE: 20150517
